FAERS Safety Report 6353326-9 (Version None)
Quarter: 2009Q3

REPORT INFORMATION
  Report Type: 
  Country: None (occurrence: None)
  Receive Date: 20090912
  Receipt Date: 20080731
  Transmission Date: 20100115
  Serious: No
  Sender: FDA-Public Use
  Company Number: US-BAUSCH-2008BL002719

PATIENT
  Age: 74 Year
  Sex: Female

DRUGS (2)
  1. ERYTHROCIN 1% [Suspect]
     Indication: BLEPHARITIS
     Route: 047
     Dates: start: 20080616
  2. GENTEAL [Concomitant]
     Indication: DRY EYE
     Route: 047

REACTIONS (3)
  - CONDITION AGGRAVATED [None]
  - EYELID OEDEMA [None]
  - OCULAR HYPERAEMIA [None]
